FAERS Safety Report 7432867-7 (Version None)
Quarter: 2011Q2

REPORT INFORMATION
  Report Type: 
  Country: None (occurrence: None)
  Receive Date: 20110422
  Receipt Date: 20110419
  Transmission Date: 20111010
  Serious: Yes (Other)
  Sender: FDA-Public Use
  Company Number: CA-ABBOTT-10P-028-0662037-00

PATIENT
  Sex: Male
  Weight: 63.56 kg

DRUGS (26)
  1. SYNTHROID [Concomitant]
     Indication: HYPOTHYROIDISM
     Dosage: 0.15MG DAILY 6/7 DAYS
     Route: 048
  2. CRESTOR [Concomitant]
     Indication: BLOOD CHOLESTEROL ABNORMAL
     Route: 048
     Dates: start: 20060101
  3. VITAMIN D [Concomitant]
     Indication: PRODUCT USED FOR UNKNOWN INDICATION
     Dosage: EVERY WEEK
     Route: 048
  4. FLOMAX [Concomitant]
     Indication: DYSURIA
     Route: 048
     Dates: start: 20100101
  5. METHOTREXATE [Concomitant]
     Indication: PRODUCT USED FOR UNKNOWN INDICATION
     Dosage: 2.5MG 3 TABS/WEEK
     Route: 048
  6. CRESTOR [Concomitant]
     Indication: BLOOD CHOLESTEROL INCREASED
  7. NASONEX [Concomitant]
     Indication: SINUSITIS
     Dosage: TWICE DAILY AS NEEDED
     Route: 045
  8. CRESTOR [Concomitant]
     Indication: PROPHYLAXIS
  9. FOSAMAX [Concomitant]
     Indication: PRODUCT USED FOR UNKNOWN INDICATION
     Dosage: EVERY WEEK
     Route: 048
  10. CALCIUM [Concomitant]
     Indication: MINERAL SUPPLEMENTATION
     Route: 048
  11. PREDNISONE [Concomitant]
     Indication: ARTHRITIS
     Route: 048
  12. PREVACID [Concomitant]
     Indication: GASTRIC DISORDER
     Route: 048
  13. HUMIRA [Suspect]
     Indication: RHEUMATOID ARTHRITIS
     Route: 058
     Dates: start: 20050929, end: 20100604
  14. FLOVENT [Concomitant]
     Indication: SINUSITIS
     Dosage: AS NEEDED
     Route: 055
  15. PLAQUENIL [Concomitant]
     Indication: PRODUCT USED FOR UNKNOWN INDICATION
     Dosage: DAILY ON EVEN DAYS
     Route: 048
  16. PLAQUENIL [Concomitant]
     Dosage: DAILY ON ODD DAYS
     Route: 048
  17. APO-BISOPROLOL [Concomitant]
     Indication: CARDIAC DISORDER
     Route: 048
  18. PREVACID [Concomitant]
     Indication: GASTROOESOPHAGEAL REFLUX DISEASE
  19. PAIN MEDICATION UNKNOWN [Concomitant]
     Indication: PAIN
     Route: 048
     Dates: start: 20101001
  20. ANTIBIOTIC [Concomitant]
     Indication: SINUSITIS
     Dates: start: 20100705, end: 20100712
  21. ASAPHEN [Concomitant]
     Indication: CARDIAC DISORDER
     Route: 048
  22. AMOXICILLIN [Concomitant]
     Indication: SINUSITIS
     Route: 048
     Dates: start: 20100623
  23. SYNTHROID [Concomitant]
     Indication: HYPERTHYROIDISM
  24. LEUCOVORIN [Concomitant]
     Indication: PRODUCT USED FOR UNKNOWN INDICATION
     Dosage: 5MG EVERY WEEK
     Route: 048
  25. PAIN MEDICATION UNKNOWN [Concomitant]
     Indication: FALL
  26. IRON SUPPLEMENT [Concomitant]
     Indication: MINERAL SUPPLEMENTATION
     Route: 048
     Dates: start: 20101001

REACTIONS (7)
  - BLOOD CHOLESTEROL INCREASED [None]
  - CORONARY ARTERY OCCLUSION [None]
  - CHEST PAIN [None]
  - ARTERIAL OCCLUSIVE DISEASE [None]
  - ARTHRITIS [None]
  - FATIGUE [None]
  - DYSPNOEA [None]
